FAERS Safety Report 25124434 (Version 2)
Quarter: 2025Q2

REPORT INFORMATION
  Report Type: Report from Study
  Country: US (occurrence: US)
  Receive Date: 20250326
  Receipt Date: 20250502
  Transmission Date: 20250716
  Serious: Yes (Hospitalization, Other)
  Sender: ALNYLAM PHARMACEUTICALS
  Company Number: US-ALNYLAM PHARMACEUTICALS, INC.-ALN-2025-001284

PATIENT

DRUGS (1)
  1. GIVLAARI [Suspect]
     Active Substance: GIVOSIRAN SODIUM
     Indication: Porphyria acute
     Route: 065
     Dates: start: 20210429, end: 20210429

REACTIONS (4)
  - Porphyria acute [Unknown]
  - Cardio-respiratory arrest [Unknown]
  - Therapy interrupted [Unknown]
  - Liver function test increased [Not Recovered/Not Resolved]
